FAERS Safety Report 25450138 (Version 1)
Quarter: 2025Q2

REPORT INFORMATION
  Report Type: Spontaneous
  Country: GB (occurrence: GB)
  Receive Date: 20250618
  Receipt Date: 20250618
  Transmission Date: 20250717
  Serious: Yes (Hospitalization, Other)
  Sender: MYLAN
  Company Number: GB-MYLANLABS-2025M1041852

PATIENT
  Sex: Male

DRUGS (4)
  1. CLOZARIL [Suspect]
     Active Substance: CLOZAPINE
     Indication: Schizophrenia
     Dosage: UNK, BID (200 MG MORNING AND 400 EVENING DOSE)
     Dates: start: 20190517
  2. CLOZARIL [Suspect]
     Active Substance: CLOZAPINE
     Dosage: UNK, TID (200 MG AM AND 400 PM DOSE, AFTER TAKING BOTH DOSES TOOK 600 MG EXTRA)
     Dates: start: 20250514
  3. OLANZAPINE [Suspect]
     Active Substance: OLANZAPINE
     Indication: Product used for unknown indication
  4. OLANZAPINE [Suspect]
     Active Substance: OLANZAPINE

REACTIONS (2)
  - Overdose [Unknown]
  - Malaise [Unknown]

NARRATIVE: CASE EVENT DATE: 20250514
